FAERS Safety Report 7026781-9 (Version None)
Quarter: 2010Q4

REPORT INFORMATION
  Report Type: 
  Country: None (occurrence: None)
  Receive Date: 20101004
  Receipt Date: 20100917
  Transmission Date: 20110411
  Serious: Yes (Other)
  Sender: FDA-Public Use
  Company Number: US-ROCHE-729912

PATIENT
  Sex: Female

DRUGS (6)
  1. HERCEPTIN [Suspect]
     Dosage: EARLY 2007
     Route: 065
     Dates: start: 20070101
  2. HERCEPTIN [Suspect]
     Route: 065
     Dates: start: 20100917
  3. XELODA [Suspect]
     Route: 065
  4. XELODA [Suspect]
     Dosage: DOSE WAS REDUCED FROM 4 MG TO 2 MG
     Route: 065
  5. LAPATINIB [Concomitant]
  6. ZOMETA [Concomitant]

REACTIONS (12)
  - ALANINE AMINOTRANSFERASE INCREASED [None]
  - ASPARTATE AMINOTRANSFERASE INCREASED [None]
  - BLOOD ALKALINE PHOSPHATASE INCREASED [None]
  - DRUG EFFECT DECREASED [None]
  - HEADACHE [None]
  - HEPATIC ENZYME INCREASED [None]
  - HEPATIC NEOPLASM MALIGNANT [None]
  - JAUNDICE [None]
  - METASTASES TO BONE [None]
  - METASTASES TO CENTRAL NERVOUS SYSTEM [None]
  - OCULAR ICTERUS [None]
  - SKIN ULCER [None]
